FAERS Safety Report 7500806-6 (Version None)
Quarter: 2011Q2

REPORT INFORMATION
  Report Type: 
  Country: None (occurrence: None)
  Receive Date: 20110524
  Receipt Date: 20110512
  Transmission Date: 20111010
  Serious: Yes (Hospitalization)
  Sender: FDA-Public Use
  Company Number: A0785702A

PATIENT
  Age: 55 Year
  Sex: Male
  Weight: 86.4 kg

DRUGS (10)
  1. TENORMIN [Concomitant]
  2. VICODIN [Concomitant]
  3. PRILOSEC [Concomitant]
  4. ATENOLOL [Concomitant]
  5. LISINOPRIL [Concomitant]
  6. ASPIRIN [Concomitant]
  7. AVANDIA [Suspect]
     Dosage: 8MG PER DAY
     Route: 048
     Dates: start: 20000401, end: 20060101
  8. XANAX [Concomitant]
  9. FUROSEMIDE [Concomitant]
  10. ZOCOR [Concomitant]

REACTIONS (4)
  - CARDIAC FAILURE CONGESTIVE [None]
  - CORONARY ARTERY DISEASE [None]
  - MYOCARDIAL INFARCTION [None]
  - MYOCARDIAL ISCHAEMIA [None]
